FAERS Safety Report 17812570 (Version 1)
Quarter: 2020Q2

REPORT INFORMATION
  Report Type: Spontaneous
  Country: US (occurrence: US)
  Receive Date: 20200521
  Receipt Date: 20200521
  Transmission Date: 20200714
  Serious: No
  Sender: FDA-Public Use
  Company Number: None

PATIENT
  Age: 57 Year
  Sex: Male

DRUGS (2)
  1. CEFTRIAXONE. [Suspect]
     Active Substance: CEFTRIAXONE
     Indication: DEVICE RELATED INFECTION
     Route: 042
     Dates: start: 20200427, end: 20200511
  2. CEFTRIAXONE. [Suspect]
     Active Substance: CEFTRIAXONE
     Indication: DEVICE RELATED INFECTION
     Route: 042
     Dates: start: 20200427, end: 20200511

REACTIONS (2)
  - Rash [None]
  - Therapy cessation [None]

NARRATIVE: CASE EVENT DATE: 20200511
